FAERS Safety Report 10347709 (Version 1)
Quarter: 2014Q3

REPORT INFORMATION
  Report Type: Spontaneous
  Country: US (occurrence: US)
  Receive Date: 20140729
  Receipt Date: 20140729
  Transmission Date: 20150326
  Serious: No
  Sender: FDA-Public Use
  Company Number: US-BAYER-2014-109998

PATIENT
  Sex: Male

DRUGS (3)
  1. BAYER ADVANCED ASPIRIN REGULAR STRENGTH [Suspect]
     Active Substance: ASPIRIN
     Indication: ASTHMA
  2. ALEVE [Suspect]
     Active Substance: NAPROXEN SODIUM
     Dosage: UNK
  3. BAYER ADVANCED ASPIRIN REGULAR STRENGTH [Suspect]
     Active Substance: ASPIRIN
     Indication: CARDIAC DISORDER
     Dosage: UNK

REACTIONS (2)
  - Off label use [None]
  - Drug ineffective [None]
